FAERS Safety Report 6743919-9 (Version None)
Quarter: 2010Q2

REPORT INFORMATION
  Report Type: 
  Country: None (occurrence: None)
  Receive Date: 20100527
  Receipt Date: 20100513
  Transmission Date: 20101027
  Serious: Yes (Disabling, Other)
  Sender: FDA-Public Use
  Company Number: PHHY2010GB30218

PATIENT
  Sex: Male

DRUGS (2)
  1. CLOZARIL [Suspect]
     Indication: SCHIZOPHRENIA
     Dosage: 400MG
     Route: 048
     Dates: start: 20080818
  2. CLOZARIL [Suspect]
     Dosage: 425MG
     Route: 047

REACTIONS (3)
  - DRUG ABUSE [None]
  - SCHIZOPHRENIA [None]
  - SUBSTANCE ABUSE [None]
